FAERS Safety Report 4665910-9 (Version None)
Quarter: 2005Q2

REPORT INFORMATION
  Report Type: 
  Country: None (occurrence: None)
  Receive Date: 20050517
  Receipt Date: 20050505
  Transmission Date: 20051028
  Serious: Yes (Hospitalization)
  Sender: FDA-Public Use
  Company Number: 2005061328

PATIENT
  Age: 72 Year
  Sex: Female
  Weight: 67.1324 kg

DRUGS (12)
  1. NICOTROL [Suspect]
     Indication: SMOKING CESSATION THERAPY
     Dosage: 2 CARTRIDGES DAILY, INHALATION
     Route: 055
     Dates: start: 20050415
  2. SERETIDE MITE (FLUTICASONE PROPIONATE, SALMETEROL XINAFOATE) [Concomitant]
  3. NAPROXEN [Concomitant]
  4. FLUOXETINE HCL [Concomitant]
  5. CHLORPROMAZINE [Concomitant]
  6. RISEDRONATE SODIUM (RISEDRONATE SODIUM) [Concomitant]
  7. HYZAAR [Concomitant]
  8. ATORVASTATIN CALCIUM [Concomitant]
  9. RANITIDINE HYDROCHLORIDE [Concomitant]
  10. PYRIDOXINE HCL [Concomitant]
  11. CYANOCOBALAMIN [Concomitant]
  12. FOLIC ACID [Concomitant]

REACTIONS (6)
  - CHROMATURIA [None]
  - DEHYDRATION [None]
  - DRY MOUTH [None]
  - PLEURAL EFFUSION [None]
  - PNEUMONIA [None]
  - WEIGHT DECREASED [None]
